FAERS Safety Report 6088905-X (Version None)
Quarter: 2009Q1

REPORT INFORMATION
  Report Type: 
  Country: None (occurrence: None)
  Receive Date: 20090224
  Receipt Date: 20090217
  Transmission Date: 20090719
  Serious: Yes (Hospitalization)
  Sender: FDA-Public Use
  Company Number: US-BAYER-200814573BCC

PATIENT
  Age: 44 Year
  Sex: Female
  Weight: 67 kg

DRUGS (1)
  1. ALEVE [Suspect]
     Indication: ARTHRALGIA
     Dosage: TOTAL DAILY DOSE: 440 MG  UNIT DOSE: 220 MG
     Route: 048
     Dates: start: 20081009

REACTIONS (9)
  - ANAPHYLACTIC SHOCK [None]
  - DIARRHOEA [None]
  - HYPOTENSION [None]
  - INCOHERENT [None]
  - LETHARGY [None]
  - NAUSEA [None]
  - PRURITUS GENERALISED [None]
  - SYNCOPE [None]
  - VOMITING [None]
